FAERS Safety Report 18476488 (Version 1)
Quarter: 2020Q4

REPORT INFORMATION
  Report Type: Spontaneous
  Country: IT (occurrence: IT)
  Receive Date: 20201106
  Receipt Date: 20201106
  Transmission Date: 20210114
  Serious: Yes (Hospitalization, Other)
  Sender: FDA-Public Use
  Company Number: IT-AUROBINDO-AUR-APL-2020-054393

PATIENT
  Age: 67 Year
  Sex: Female
  Weight: 53 kg

DRUGS (10)
  1. FLUOROURACIL. [Suspect]
     Active Substance: FLUOROURACIL
     Indication: COLORECTAL CANCER METASTATIC
     Dosage: 3888 MILLIGRAM
     Route: 042
     Dates: start: 20200812, end: 20200909
  2. CETUXIMAB. [Suspect]
     Active Substance: CETUXIMAB
     Indication: COLORECTAL CANCER METASTATIC
     Dosage: 795 MILLIGRAM
     Route: 042
     Dates: start: 20200812, end: 20200909
  3. IRINOTECAN [Suspect]
     Active Substance: IRINOTECAN
     Indication: COLORECTAL CANCER METASTATIC
     Dosage: 243 MILLIGRAM
     Route: 042
     Dates: start: 20200812, end: 20200909
  4. OMEPRAZOLE. [Concomitant]
     Active Substance: OMEPRAZOLE
     Indication: PRODUCT USED FOR UNKNOWN INDICATION
     Dosage: UNK
     Route: 065
     Dates: start: 20200717
  5. IRINOTECAN [Suspect]
     Active Substance: IRINOTECAN
     Dosage: 179 MILLIGRAM
     Route: 042
     Dates: start: 20201006
  6. CETUXIMAB. [Suspect]
     Active Substance: CETUXIMAB
     Dosage: 795 MILLIGRAM
     Route: 042
     Dates: start: 20201006
  7. AVELUMAB [Suspect]
     Active Substance: AVELUMAB
     Indication: COLORECTAL CANCER METASTATIC
     Dosage: 800 MILLIGRAM
     Route: 042
     Dates: start: 20200812, end: 20200909
  8. FLUOROURACIL. [Suspect]
     Active Substance: FLUOROURACIL
     Dosage: 2862 MILLIGRAM
     Route: 042
     Dates: start: 20201006
  9. AVELUMAB [Suspect]
     Active Substance: AVELUMAB
     Dosage: 800 MILLIGRAM
     Route: 042
     Dates: start: 20201006
  10. OXALIPLATIN. [Suspect]
     Active Substance: OXALIPLATIN
     Indication: COLORECTAL CANCER METASTATIC
     Dosage: 138 MILLIGRAM
     Route: 065
     Dates: start: 20200812

REACTIONS (4)
  - Hyponatraemia [Unknown]
  - Dehydration [Unknown]
  - Hypokalaemia [Unknown]
  - Diarrhoea [Recovered/Resolved]
